FAERS Safety Report 9988090 (Version 5)
Quarter: 2014Q2

REPORT INFORMATION
  Report Type: Spontaneous
  Country: US (occurrence: US)
  Receive Date: 20140307
  Receipt Date: 20140515
  Transmission Date: 20141212
  Serious: Yes (Other)
  Sender: FDA-Public Use
  Company Number: US-JNJFOC-20140216444

PATIENT
  Sex: Female
  Weight: 88.45 kg

DRUGS (16)
  1. TYLENOL PM EXTRA STRENGTH CAPLET [Suspect]
     Indication: SLEEP DISORDER THERAPY
     Dosage: AT NIGHT
     Route: 048
  2. TYLENOL PM EXTRA STRENGTH CAPLET [Suspect]
     Indication: PAIN
     Dosage: AT NIGHT
     Route: 048
  3. TYLENOL EXTRA STRENGTH CAPLET [Suspect]
     Indication: PAIN
     Dosage: 1 TO 2 CAPLETS WHEN NEEDED
     Route: 048
  4. TYLENOL ARTHRITIS PAIN [Suspect]
     Route: 048
  5. TYLENOL ARTHRITIS PAIN [Suspect]
     Indication: ARTHRALGIA
     Dosage: 1 OR 2 CAPLETS AS NEEDED
     Route: 048
  6. RESTORIL [Concomitant]
     Indication: SLEEP DISORDER THERAPY
     Route: 065
  7. METFORMIN [Concomitant]
     Indication: DIABETES MELLITUS
     Route: 065
  8. CITALOPRAM [Concomitant]
     Indication: NERVOUSNESS
     Route: 065
  9. ATENOLOL [Concomitant]
     Indication: HYPERTENSION
     Route: 065
  10. LISINOPRIL [Concomitant]
     Indication: ARTHRITIS
     Route: 065
  11. OMEPRAZOLE [Concomitant]
     Indication: DYSPEPSIA
     Route: 065
  12. LOVASTATIN [Concomitant]
     Indication: BLOOD CHOLESTEROL ABNORMAL
     Route: 065
  13. HYDROCHLOROTHIAZIDE [Concomitant]
     Indication: DIURETIC THERAPY
     Route: 065
  14. VENTOLIN [Concomitant]
     Indication: PRODUCT USED FOR UNKNOWN INDICATION
     Route: 065
  15. DICLOFENAC [Concomitant]
     Indication: INFLAMMATION
     Route: 065
  16. TRAMADOL [Concomitant]
     Indication: PAIN
     Route: 065

REACTIONS (2)
  - Hepatic steatosis [Unknown]
  - Expired product administered [Unknown]
